FAERS Safety Report 14220988 (Version 1)
Quarter: 2017Q4

REPORT INFORMATION
  Report Type: Report from Study
  Country: US (occurrence: US)
  Receive Date: 20171124
  Receipt Date: 20171124
  Transmission Date: 20180321
  Serious: Yes (Other)
  Sender: FDA-Public Use
  Company Number: US-BRISTOL-MYERS SQUIBB COMPANY-BMS-2017-104520

PATIENT
  Sex: Female
  Weight: 70.74 kg

DRUGS (1)
  1. APIXABAN [Suspect]
     Active Substance: APIXABAN
     Indication: CEREBROVASCULAR ACCIDENT PROPHYLAXIS
     Dosage: 5 MG, BID
     Route: 048
     Dates: start: 201709

REACTIONS (6)
  - Cardiac disorder [Unknown]
  - Arthralgia [Unknown]
  - Pain in extremity [Unknown]
  - Contusion [Unknown]
  - Headache [Unknown]
  - Neuropathy peripheral [Unknown]
